FAERS Safety Report 7030049-4 (Version None)
Quarter: 2010Q4

REPORT INFORMATION
  Report Type: 
  Country: None (occurrence: None)
  Receive Date: 20101006
  Receipt Date: 20100927
  Transmission Date: 20110411
  Serious: Yes (Hospitalization, Other)
  Sender: FDA-Public Use
  Company Number: US-JNJFOC-20100707440

PATIENT
  Sex: Female

DRUGS (4)
  1. LEVAQUIN [Suspect]
     Indication: INFECTION
     Route: 048
  2. LEVAQUIN [Suspect]
     Route: 042
  3. CIPROFLOXACIN [Suspect]
     Indication: INFECTION
     Route: 065
  4. PREDNISOLONE [Suspect]
     Indication: ARTHRITIS
     Route: 065

REACTIONS (4)
  - KNEE OPERATION [None]
  - PERIARTHRITIS [None]
  - ROTATOR CUFF SYNDROME [None]
  - TENDONITIS [None]
